FAERS Safety Report 4864575-0 (Version None)
Quarter: 2005Q4

REPORT INFORMATION
  Report Type: 
  Country: None (occurrence: None)
  Receive Date: 20051222
  Receipt Date: 20051215
  Transmission Date: 20060501
  Serious: Yes (Life-Threatening, Hospitalization)
  Sender: FDA-Public Use
  Company Number: FR-ABBOTT-05P-056-0319739-00

PATIENT
  Age: 35 Year
  Sex: Female

DRUGS (7)
  1. DEPAKENE [Suspect]
     Indication: SUICIDE ATTEMPT
     Route: 048
     Dates: start: 20051113, end: 20051113
  2. DEPAKENE [Suspect]
     Indication: EPILEPSY
     Route: 048
  3. TOPIRAMATE [Suspect]
     Indication: SUICIDE ATTEMPT
     Route: 048
     Dates: start: 20051113, end: 20051113
  4. TOPIRAMATE [Suspect]
     Indication: EPILEPSY
     Route: 048
  5. BROMAZEPAM [Suspect]
     Indication: SUICIDE ATTEMPT
     Route: 048
     Dates: start: 20051113, end: 20051113
  6. BROMAZEPAM [Suspect]
     Indication: DEPRESSION
     Route: 048
  7. ZOLPIDEM TARTRATE [Concomitant]
     Indication: DEPRESSION
     Route: 048

REACTIONS (8)
  - COMA [None]
  - HEPATIC FAILURE [None]
  - HYPOGLYCAEMIA [None]
  - INTENTIONAL OVERDOSE [None]
  - METABOLIC ACIDOSIS [None]
  - PNEUMONIA [None]
  - SHOCK [None]
  - THROMBOCYTOPENIA [None]
